FAERS Safety Report 6462451-3 (Version None)
Quarter: 2009Q4

REPORT INFORMATION
  Report Type: 
  Country: None (occurrence: None)
  Receive Date: 20091130
  Receipt Date: 20091117
  Transmission Date: 20100525
  Serious: Yes (Other)
  Sender: FDA-Public Use
  Company Number: RU-PFIZER INC-2009299180

PATIENT

DRUGS (1)
  1. ZYVOX [Suspect]
     Indication: PNEUMONIA

REACTIONS (2)
  - ANAPHYLACTIC REACTION [None]
  - BRONCHOSPASM [None]
